FAERS Safety Report 4877082-6 (Version None)
Quarter: 2005Q4

REPORT INFORMATION
  Report Type: 
  Country: None (occurrence: None)
  Receive Date: 20051206
  Receipt Date: 20050822
  Transmission Date: 20060501
  Serious: No
  Sender: FDA-Public Use
  Company Number: USA0508106011

PATIENT
  Age: 17 Year
  Sex: Female

DRUGS (5)
  1. CYMBALTA [Suspect]
     Indication: ANXIETY DISORDER
     Dosage: 60 MG DAY
     Dates: start: 20041201
  2. MIRAPEX [Concomitant]
  3. KLONOPIN [Concomitant]
  4. ORTHO TRI-CYCLEN [Concomitant]
  5. VITAMINS [Concomitant]

REACTIONS (3)
  - FATIGUE [None]
  - RESTLESS LEGS SYNDROME [None]
  - SOMNOLENCE [None]
